FAERS Safety Report 10080744 (Version 2)
Quarter: 2014Q2

REPORT INFORMATION
  Report Type: Spontaneous
  Country: DE (occurrence: DE)
  Receive Date: 20140416
  Receipt Date: 20140522
  Transmission Date: 20141212
  Serious: Yes (Life-Threatening, Hospitalization)
  Sender: FDA-Public Use
  Company Number: DE-JNJFOC-20140409394

PATIENT
  Age: 75 Year
  Sex: Male
  Weight: 83 kg

DRUGS (8)
  1. XARELTO [Suspect]
     Indication: PRODUCT USED FOR UNKNOWN INDICATION
     Route: 048
  2. ASS [Suspect]
     Indication: CORONARY ARTERY DISEASE
     Route: 065
  3. BISOPROLOL [Concomitant]
     Indication: HYPERTENSION
     Route: 065
  4. BISOPROLOL [Concomitant]
     Indication: CORONARY ARTERY DISEASE
     Route: 065
  5. VALSARTAN [Concomitant]
     Indication: HYPERTENSION
     Route: 065
  6. VALSARTAN [Concomitant]
     Indication: CORONARY ARTERY DISEASE
     Route: 065
  7. TORASEMID [Concomitant]
     Indication: HYPERTENSION
     Route: 065
  8. TORASEMID [Concomitant]
     Indication: CORONARY ARTERY DISEASE
     Route: 065

REACTIONS (1)
  - Duodenal ulcer [Unknown]
